FAERS Safety Report 7331725-6 (Version None)
Quarter: 2011Q1

REPORT INFORMATION
  Report Type: 
  Country: None (occurrence: None)
  Receive Date: 20110304
  Receipt Date: 20110218
  Transmission Date: 20110831
  Serious: Yes (Hospitalization)
  Sender: FDA-Public Use
  Company Number: PHHY2011CH13050

PATIENT
  Age: 32 Year
  Sex: Female

DRUGS (2)
  1. TEGRETOL [Interacting]
     Indication: BIPOLAR DISORDER
     Dosage: UNK
     Dates: start: 20100101, end: 20101105
  2. WELLBATRIN XR [Suspect]
     Indication: BIPOLAR DISORDER
     Dosage: 300 MG/ DAY
     Dates: start: 20070101, end: 20101202

REACTIONS (13)
  - GAMMA-GLUTAMYLTRANSFERASE INCREASED [None]
  - PRESYNCOPE [None]
  - BLOOD CREATINE PHOSPHOKINASE MB INCREASED [None]
  - VOMITING [None]
  - HYPERVENTILATION [None]
  - ALANINE AMINOTRANSFERASE INCREASED [None]
  - HEPATOCELLULAR INJURY [None]
  - DRUG INTERACTION [None]
  - ABDOMINAL PAIN [None]
  - PROTHROMBIN TIME PROLONGED [None]
  - NAUSEA [None]
  - ASPARTATE AMINOTRANSFERASE INCREASED [None]
  - CHEST PAIN [None]
